FAERS Safety Report 8588402-3 (Version None)
Quarter: 2012Q3

REPORT INFORMATION
  Report Type: 
  Country: None (occurrence: None)
  Receive Date: 20120813
  Receipt Date: 20120807
  Transmission Date: 20120928
  Serious: Yes (Other)
  Sender: FDA-Public Use
  Company Number: US-JNJFOC-20120613533

PATIENT
  Age: 52 Year
  Sex: Female

DRUGS (7)
  1. AMPHOTERICIN B [Suspect]
     Dosage: 13 DAYS
     Route: 065
     Dates: start: 20071201
  2. TACROLIMUS [Suspect]
     Indication: HISTOPLASMOSIS
     Route: 065
  3. ITRACONAZOLE [Suspect]
     Indication: HISTOPLASMOSIS
     Dosage: TWICE A DAY TO THREE TIMES A DAY, BECAUSE OF PHENYTOIN
     Route: 048
     Dates: start: 20050301, end: 20070101
  4. SIROLIMUS [Suspect]
     Indication: HISTOPLASMOSIS
     Route: 065
  5. ITRACONAZOLE [Suspect]
     Route: 048
     Dates: start: 20071201, end: 20090101
  6. AMPHOTERICIN B [Suspect]
     Indication: HISTOPLASMOSIS
     Dosage: FOR 16 DAYS
     Route: 065
     Dates: start: 20050301
  7. PHENYTOIN [Concomitant]
     Indication: PRODUCT USED FOR UNKNOWN INDICATION
     Route: 065

REACTIONS (2)
  - HISTOPLASMOSIS [None]
  - DRUG LEVEL BELOW THERAPEUTIC [None]
